FAERS Safety Report 10889758 (Version 2)
Quarter: 2017Q3

REPORT INFORMATION
  Report Type: Report from Study
  Country: PL (occurrence: PL)
  Receive Date: 20150306
  Receipt Date: 20170920
  Transmission Date: 20171127
  Serious: Yes (Other)
  Sender: FDA-Public Use
  Company Number: PL-ROCHE-1449334

PATIENT
  Age: 62 Year
  Sex: Female
  Weight: 71 kg

DRUGS (4)
  1. METHOTREXATE. [Suspect]
     Active Substance: METHOTREXATE
     Indication: RHEUMATOID ARTHRITIS
     Route: 048
     Dates: start: 2011
  2. MEPROLONE [Suspect]
     Active Substance: METHYLPREDNISOLONE ACETATE
     Indication: RHEUMATOID ARTHRITIS
     Route: 048
     Dates: start: 2008
  3. FOLIC ACID. [Concomitant]
     Active Substance: FOLIC ACID
     Indication: RHEUMATOID ARTHRITIS
     Route: 048
     Dates: start: 2011
  4. ROACTEMRA [Suspect]
     Active Substance: TOCILIZUMAB
     Indication: RHEUMATOID ARTHRITIS
     Route: 042
     Dates: start: 20130425, end: 20140627

REACTIONS (2)
  - Bladder cancer [Unknown]
  - Haematuria [Unknown]

NARRATIVE: CASE EVENT DATE: 201407
